FAERS Safety Report 6022113-3 (Version None)
Quarter: 2008Q4

REPORT INFORMATION
  Report Type: 
  Country: None (occurrence: None)
  Receive Date: 20081229
  Receipt Date: 20081218
  Transmission Date: 20090506
  Serious: Yes (Death)
  Sender: FDA-Public Use
  Company Number: IN-BAXTER-2008BH014018

PATIENT
  Age: 52 Year
  Sex: Male

DRUGS (11)
  1. DIANEAL [Suspect]
     Indication: RENAL FAILURE CHRONIC
     Route: 033
     Dates: start: 20081101, end: 20081218
  2. DIANEAL [Suspect]
     Route: 033
     Dates: start: 20070801, end: 20081101
  3. EXTRANEAL [Suspect]
     Indication: RENAL FAILURE CHRONIC
     Route: 033
     Dates: start: 20081101, end: 20081218
  4. EXTRANEAL [Suspect]
     Route: 033
     Dates: start: 20070801, end: 20081101
  5. HUMAN ACTRAPID [Concomitant]
     Indication: DRUG USE FOR UNKNOWN INDICATION
     Route: 065
     Dates: end: 20081218
  6. HUMAN ACTRAPID [Concomitant]
     Route: 065
     Dates: end: 20081218
  7. HUMAN ACTRAPID [Concomitant]
     Route: 065
     Dates: end: 20081218
  8. ECOSPRIN [Concomitant]
     Indication: DRUG USE FOR UNKNOWN INDICATION
     Route: 065
     Dates: end: 20081218
  9. AMLONG [Concomitant]
     Indication: DRUG USE FOR UNKNOWN INDICATION
     Route: 065
     Dates: end: 20081218
  10. ZYNAGEL [Concomitant]
     Indication: DRUG USE FOR UNKNOWN INDICATION
     Route: 065
     Dates: end: 20081218
  11. PAN 40 [Concomitant]
     Indication: DRUG USE FOR UNKNOWN INDICATION
     Route: 065
     Dates: end: 20081218

REACTIONS (1)
  - CARDIAC ARREST [None]
